FAERS Safety Report 5261788-3 (Version None)
Quarter: 2007Q1

REPORT INFORMATION
  Report Type: 
  Country: None (occurrence: None)
  Receive Date: 20070308
  Receipt Date: 20070226
  Transmission Date: 20070707
  Serious: Yes (Hospitalization)
  Sender: FDA-Public Use
  Company Number: 231522K07USA

PATIENT
  Age: 40 Year
  Sex: Female

DRUGS (7)
  1. REBIF [Suspect]
     Indication: MULTIPLE SCLEROSIS
     Dosage: 44 MCG, 3 IN 1 WEEKS, SUBCUTANEOUS
     Route: 058
     Dates: start: 20050507
  2. GLUCOPHAGE (METFORMIN /00082701/) [Concomitant]
  3. ZOCOR (ZOCOR CARDIO ASS) [Concomitant]
  4. ROBINUL (GLYCOPYRRONIUM BROMIDE) [Concomitant]
  5. CLONOPIN [Concomitant]
  6. CELEXA [Concomitant]
  7. SEROQUEL [Concomitant]

REACTIONS (4)
  - DEPRESSION [None]
  - LOSS OF CONSCIOUSNESS [None]
  - STRESS [None]
  - SYNCOPE [None]
